FAERS Safety Report 13501533 (Version 1)
Quarter: 2017Q2

REPORT INFORMATION
  Report Type: Spontaneous
  Country: US (occurrence: US)
  Receive Date: 20170501
  Receipt Date: 20170501
  Transmission Date: 20170830
  Serious: Yes (Hospitalization)
  Sender: FDA-Public Use
  Company Number: US-BEH-2017079862

PATIENT
  Age: 68 Year
  Sex: Male
  Weight: 78.5 kg

DRUGS (23)
  1. ISOSORBIDE DN [Concomitant]
  2. DIGOXIN. [Concomitant]
     Active Substance: DIGOXIN
  3. ZITHROMAX [Concomitant]
     Active Substance: AZITHROMYCIN DIHYDRATE
  4. EPIPEN [Concomitant]
     Active Substance: EPINEPHRINE
  5. HIZENTRA [Suspect]
     Active Substance: HUMAN IMMUNOGLOBULIN G
     Dosage: UNK
     Route: 058
  6. METOPROLOL SUCCINATE. [Concomitant]
     Active Substance: METOPROLOL SUCCINATE
  7. TRAMADOL. [Concomitant]
     Active Substance: TRAMADOL
  8. HYDRALAZINE [Concomitant]
     Active Substance: HYDRALAZINE HYDROCHLORIDE
  9. DIPHENHYDRAMINE. [Concomitant]
     Active Substance: DIPHENHYDRAMINE
  10. GABAPENTIN. [Concomitant]
     Active Substance: GABAPENTIN
  11. ALLOPURINOL. [Concomitant]
     Active Substance: ALLOPURINOL
  12. FLONASE [Concomitant]
     Active Substance: FLUTICASONE PROPIONATE
  13. FUROSEMIDE. [Concomitant]
     Active Substance: FUROSEMIDE
  14. SINGULAIR [Concomitant]
     Active Substance: MONTELUKAST SODIUM
  15. NEXIUM [Concomitant]
     Active Substance: ESOMEPRAZOLE MAGNESIUM
  16. XARELTO [Concomitant]
     Active Substance: RIVAROXABAN
  17. HIZENTRA [Suspect]
     Active Substance: HUMAN IMMUNOGLOBULIN G
     Dosage: UNK
     Route: 058
  18. LMX                                /00033401/ [Concomitant]
  19. MYRBETRIQ [Concomitant]
     Active Substance: MIRABEGRON
  20. AZELASTINE [Concomitant]
     Active Substance: AZELASTINE
  21. LETROZOLE. [Concomitant]
     Active Substance: LETROZOLE
  22. ADVAIR HFA [Concomitant]
     Active Substance: FLUTICASONE PROPIONATE\SALMETEROL XINAFOATE
  23. HIZENTRA [Suspect]
     Active Substance: HUMAN IMMUNOGLOBULIN G
     Indication: IMMUNODEFICIENCY
     Dosage: 10 G, UNK
     Route: 058
     Dates: start: 20131030

REACTIONS (2)
  - Cardiac failure congestive [Recovered/Resolved]
  - Cardiac failure congestive [Unknown]

NARRATIVE: CASE EVENT DATE: 20170407
